FAERS Safety Report 9912128 (Version 3)
Quarter: 2014Q2

REPORT INFORMATION
  Report Type: Spontaneous
  Country: GB (occurrence: GB)
  Receive Date: 20140219
  Receipt Date: 20140429
  Transmission Date: 20141212
  Serious: Yes (Hospitalization)
  Sender: FDA-Public Use
  Company Number: GB-BRISTOL-MYERS SQUIBB COMPANY-20191177

PATIENT
  Age: 79 Year
  Sex: Male

DRUGS (8)
  1. YERVOY [Suspect]
     Indication: METASTATIC MALIGNANT MELANOMA
     Dosage: CYC2-2JAN14-260MG-RECENT DOSE?3 WKLY CYCS
     Route: 042
     Dates: start: 20131212, end: 20140102
  2. ATORVASTATIN [Concomitant]
     Indication: BLOOD CHOLESTEROL
  3. CANDESARTAN [Concomitant]
     Indication: BLOOD PRESSURE
  4. BISOPROLOL [Concomitant]
     Indication: BLOOD PRESSURE
  5. ASPIRIN [Concomitant]
  6. MEBEVERINE [Concomitant]
  7. CYCLIZINE [Concomitant]
     Indication: MALAISE
  8. BUSCOPAN [Concomitant]

REACTIONS (2)
  - Colitis [Unknown]
  - Intestinal perforation [Unknown]
